FAERS Safety Report 9286044 (Version 4)
Quarter: 2013Q2

REPORT INFORMATION
  Report Type: Report from Study
  Country: IN (occurrence: IN)
  Receive Date: 20130513
  Receipt Date: 20130605
  Transmission Date: 20140414
  Serious: No
  Sender: FDA-Public Use
  Company Number: IN-B.I. PHARMACEUTICALS,INC./RIDGEFIELD-2013-RU-00480BP

PATIENT
  Age: 43 Year
  Sex: Male
  Weight: 98.1 kg

DRUGS (3)
  1. BI 1356 [Suspect]
     Indication: TYPE 2 DIABETES MELLITUS
     Dates: start: 20120222
  2. ECOSPRIN-AV (ASPIRIN + ATORVASTATIN) [Concomitant]
     Indication: HYPERLIPIDAEMIA
     Route: 048
     Dates: start: 20120222
  3. GLYCOMET [Concomitant]
     Indication: DIABETES MELLITUS
     Dosage: 2 G
     Route: 048

REACTIONS (1)
  - Hepatic enzyme increased [Recovered/Resolved]
